FAERS Safety Report 6530830-1 (Version None)
Quarter: 2010Q1

REPORT INFORMATION
  Report Type: 
  Country: None (occurrence: None)
  Receive Date: 20100108
  Receipt Date: 20090325
  Transmission Date: 20100710
  Serious: No
  Sender: FDA-Public Use
  Company Number: A0775347A

PATIENT
  Age: 65 Year
  Sex: Male

DRUGS (3)
  1. LOVAZA [Suspect]
     Dosage: 1CAPL TWICE PER DAY
     Route: 048
  2. ESTER C [Concomitant]
  3. OSTEO BI-FLEX [Concomitant]

REACTIONS (2)
  - ABDOMINAL DISCOMFORT [None]
  - ERUCTATION [None]
